FAERS Safety Report 13397370 (Version 1)
Quarter: 2017Q2

REPORT INFORMATION
  Report Type: Spontaneous
  Country: US (occurrence: US)
  Receive Date: 20170403
  Receipt Date: 20170403
  Transmission Date: 20170830
  Serious: Yes (Other)
  Sender: FDA-Public Use
  Company Number: US-PFIZER INC-2017137481

PATIENT

DRUGS (1)
  1. EFFEXOR [Suspect]
     Active Substance: VENLAFAXINE HYDROCHLORIDE
     Indication: FIBROMYALGIA
     Dosage: UNK

REACTIONS (12)
  - Drug dose omission [Unknown]
  - Insomnia [Unknown]
  - Dizziness [Unknown]
  - Cold sweat [Unknown]
  - Paraesthesia [Unknown]
  - Feeling abnormal [Unknown]
  - Fibromyalgia [Unknown]
  - Disorientation [Unknown]
  - Condition aggravated [Unknown]
  - Nausea [Unknown]
  - Drug ineffective for unapproved indication [Unknown]
  - Malaise [Unknown]
